FAERS Safety Report 25259242 (Version 2)
Quarter: 2025Q4

REPORT INFORMATION
  Report Type: Spontaneous
  Country: EU (occurrence: EU)
  Receive Date: 20250501
  Receipt Date: 20251103
  Transmission Date: 20260118
  Serious: Yes (Other)
  Sender: ABBVIE
  Company Number: None

PATIENT
  Age: 47 Year
  Sex: Female

DRUGS (1)
  1. RINVOQ [Suspect]
     Active Substance: UPADACITINIB
     Indication: Dermatitis atopic
     Dosage: FORM STRENGTH - 15 MG 1 TABLET/ DAY (TABLET RP). DOSE FORM - PROLONGED-RELEASE TABLET.
     Route: 048
     Dates: start: 20240224, end: 202503

REACTIONS (1)
  - Vulvovaginal candidiasis [Recovered/Resolved]

NARRATIVE: CASE EVENT DATE: 20250301
